FAERS Safety Report 6056838-0 (Version None)
Quarter: 2009Q1

REPORT INFORMATION
  Report Type: 
  Country: None (occurrence: None)
  Receive Date: 20090126
  Receipt Date: 20090126
  Transmission Date: 20090719
  Serious: Yes (Other)
  Sender: FDA-Public Use
  Company Number: None

PATIENT
  Sex: Male
  Weight: 93.18 kg

DRUGS (13)
  1. LISINOPRIL [Suspect]
     Dosage: 10MG TABLET 10 MG QD ORAL
     Route: 048
     Dates: start: 20080312, end: 20090123
  2. AMBIEN [Concomitant]
  3. ASPIRIN [Concomitant]
  4. CLOBEX [Concomitant]
  5. GUAIFENESIN AC [Concomitant]
  6. HYDROCHLOROTHIAZIDE [Concomitant]
  7. LEXAPRO [Concomitant]
  8. LOVASTATIN [Concomitant]
  9. MIRAPEX [Concomitant]
  10. OMEPRAOLE [Concomitant]
  11. OXYCODONE HCL [Concomitant]
  12. PHENERGAN WITH CODEINE (PROMETHAZINE HCL WITH CODEINE) [Concomitant]
  13. XANAX [Concomitant]

REACTIONS (1)
  - COUGH [None]
